FAERS Safety Report 11317010 (Version 2)
Quarter: 2015Q3

REPORT INFORMATION
  Report Type: Spontaneous
  Country: JP (occurrence: JP)
  Receive Date: 20150728
  Receipt Date: 20150803
  Transmission Date: 20151125
  Serious: Yes (Hospitalization)
  Sender: FDA-Public Use
  Company Number: JP-PFIZER INC-2015245067

PATIENT
  Age: 76 Year
  Sex: Female
  Weight: 61.8 kg

DRUGS (5)
  1. METHYCOBAL [Suspect]
     Active Substance: METHYLCOBALAMIN
     Dosage: 1000 MG (500 MG X 2 TABLETS), SINGLE
     Route: 048
  2. ALPRAZOLAM. [Suspect]
     Active Substance: ALPRAZOLAM
     Dosage: 0.8 MG (0.4 MG X 2 TABLETS), SINGLE
     Route: 048
  3. LYRICA [Suspect]
     Active Substance: PREGABALIN
     Dosage: 1350 MG (75 MG X 18 CAPSULES), SINGLE
     Route: 048
  4. TOCOPHERYL NICOTINATE [Suspect]
     Active Substance: TOCOPHERYL NICOTINATE, D-.ALPHA.
     Dosage: 400 MG (200 MG X 2 TABLETS), SINGLE
     Route: 048
  5. VOGLIBOSE [Suspect]
     Active Substance: VOGLIBOSE
     Dosage: 1.2 MG (0.3 MG X 4 TABLETS), SINGLE
     Route: 048

REACTIONS (3)
  - Intentional overdose [Unknown]
  - Respiratory depression [Recovered/Resolved]
  - Altered state of consciousness [Recovered/Resolved]
